FAERS Safety Report 5000074-3 (Version None)
Quarter: 2006Q2

REPORT INFORMATION
  Report Type: 
  Country: None (occurrence: None)
  Receive Date: 20060509
  Receipt Date: 20060425
  Transmission Date: 20061013
  Serious: Yes (Hospitalization)
  Sender: FDA-Public Use
  Company Number: DE200604003943

PATIENT
  Age: 11 Year
  Sex: Male

DRUGS (3)
  1. HUMATROPE [Suspect]
     Indication: GROWTH HORMONE DEFICIENCY
     Dosage: 1.2 MG, DAILY (1/D)
     Dates: start: 20001001
  2. HUMATROPEN MG [Concomitant]
  3. L-THYROXIN-NATRIUM (LEVOTHYROXINE SODIUM) [Concomitant]

REACTIONS (1)
  - INSULIN-LIKE GROWTH FACTOR DECREASED [None]
